FAERS Safety Report 12385095 (Version 1)
Quarter: 2016Q2

REPORT INFORMATION
  Report Type: Spontaneous
  Country: US (occurrence: None)
  Receive Date: 20160518
  Receipt Date: 20160518
  Transmission Date: 20160815
  Serious: No
  Sender: FDA-Public Use
  Company Number: None

PATIENT
  Age: 44 Year
  Sex: Female
  Weight: 63.6 kg

DRUGS (1)
  1. NEULASTA [Suspect]
     Active Substance: PEGFILGRASTIM

REACTIONS (3)
  - Device dislocation [None]
  - Hyperhidrosis [None]
  - Device adhesion issue [None]

NARRATIVE: CASE EVENT DATE: 20160513
